FAERS Safety Report 18499053 (Version 2)
Quarter: 2021Q1

REPORT INFORMATION
  Report Type: Spontaneous
  Country: US (occurrence: US)
  Receive Date: 20201112
  Receipt Date: 20210105
  Transmission Date: 20210419
  Serious: Yes (Other)
  Sender: FDA-Public Use
  Company Number: US-TEVA-2020-US-1846379

PATIENT
  Age: 17 Year
  Sex: Male

DRUGS (5)
  1. SALINE [Concomitant]
     Active Substance: SODIUM CHLORIDE
     Indication: TACHYCARDIA
     Dosage: BOLUS; 3 BOLUSES ADMINISTERED
     Route: 050
  2. PIPERACILLIN. [Concomitant]
     Active Substance: PIPERACILLIN SODIUM
     Indication: EVIDENCE BASED TREATMENT
     Route: 065
  3. SALINE [Concomitant]
     Active Substance: SODIUM CHLORIDE
     Indication: HYPOTENSION
  4. HYDROXYCHLOROQUINE [Suspect]
     Active Substance: HYDROXYCHLOROQUINE
     Indication: COVID-19
     Route: 065
  5. TAZOBACTAM [Concomitant]
     Active Substance: TAZOBACTAM
     Indication: EVIDENCE BASED TREATMENT
     Route: 065

REACTIONS (2)
  - Off label use [Unknown]
  - Electrocardiogram QT prolonged [Recovered/Resolved]
